FAERS Safety Report 4790537-8 (Version None)
Quarter: 2005Q4

REPORT INFORMATION
  Report Type: 
  Country: None (occurrence: None)
  Receive Date: 20051005
  Receipt Date: 20050921
  Transmission Date: 20060501
  Serious: Yes (Other)
  Sender: FDA-Public Use
  Company Number: US_0509122202

PATIENT
  Sex: Male

DRUGS (5)
  1. CIALIS [Suspect]
     Indication: DRUG THERAPY
     Dosage: 20 MG/2 MONTH
     Dates: start: 20050301
  2. COUMADIN [Concomitant]
  3. ALLOPURINOL [Concomitant]
  4. LEVITRA [Concomitant]
  5. VIAGRA [Concomitant]

REACTIONS (2)
  - MACULAR DEGENERATION [None]
  - VISUAL ACUITY REDUCED [None]
